FAERS Safety Report 4782476-3 (Version None)
Quarter: 2005Q3

REPORT INFORMATION
  Report Type: 
  Country: None (occurrence: None)
  Receive Date: 20050929
  Receipt Date: 20041209
  Transmission Date: 20060218
  Serious: No
  Sender: FDA-Public Use
  Company Number: 393048

PATIENT

DRUGS (2)
  1. COREG [Suspect]
     Indication: DRUG USE FOR UNKNOWN INDICATION
     Dosage: 6.25MG PER DAY
     Route: 048
  2. UNKNOWN MEDICATION [Concomitant]

REACTIONS (1)
  - FATIGUE [None]
